FAERS Safety Report 17076944 (Version 2)
Quarter: 2020Q1

REPORT INFORMATION
  Report Type: Report from Study
  Country: CA (occurrence: CA)
  Receive Date: 20191126
  Receipt Date: 20200203
  Transmission Date: 20200409
  Serious: Yes (Hospitalization, Disabling)
  Sender: FDA-Public Use
  Company Number: CA-ASTRAZENECA-2019SF50327

PATIENT
  Age: 20158 Day
  Sex: Male

DRUGS (14)
  1. SPIRIVA [Concomitant]
     Active Substance: TIOTROPIUM BROMIDE MONOHYDRATE
  2. SINGULAIR [Concomitant]
     Active Substance: MONTELUKAST SODIUM
  3. LIPITOR [Concomitant]
     Active Substance: ATORVASTATIN CALCIUM
  4. VENTOLIN [Concomitant]
     Active Substance: ALBUTEROL SULFATE
  5. RAMIPRIL. [Concomitant]
     Active Substance: RAMIPRIL
  6. ZENHALE [Concomitant]
     Active Substance: FORMOTEROL FUMARATE\MOMETASONE FUROATE
  7. FASENRA [Suspect]
     Active Substance: BENRALIZUMAB
     Indication: ASTHMA
     Dosage: 30.0MG UNKNOWN
     Route: 058
     Dates: start: 20190208
  8. NASONEX [Concomitant]
     Active Substance: MOMETASONE FUROATE
  9. NUCALA [Concomitant]
     Active Substance: MEPOLIZUMAB
  10. PULMICORT TURBUHALER [Concomitant]
     Active Substance: BUDESONIDE
  11. INSULIN [Concomitant]
     Active Substance: INSULIN NOS
  12. SALBUTAMOL [Concomitant]
     Active Substance: ALBUTEROL
  13. SERC [Concomitant]
  14. COMBIVENT [Concomitant]
     Active Substance: ALBUTEROL SULFATE\IPRATROPIUM BROMIDE

REACTIONS (6)
  - Asthma [Unknown]
  - Drug ineffective [Unknown]
  - Wheezing [Unknown]
  - Pleural infection [Recovering/Resolving]
  - Back pain [Unknown]
  - Oedema peripheral [Unknown]

NARRATIVE: CASE EVENT DATE: 20191107
